FAERS Safety Report 25886015 (Version 1)
Quarter: 2025Q4

REPORT INFORMATION
  Report Type: Spontaneous
  Country: US (occurrence: None)
  Receive Date: 20251006
  Receipt Date: 20251006
  Transmission Date: 20260118
  Serious: No
  Sender: FDA-CTU
  Company Number: None

PATIENT
  Age: 81 Year
  Sex: Female

DRUGS (1)
  1. ENBREL [Suspect]
     Active Substance: ETANERCEPT
     Indication: Rheumatoid arthritis
     Dosage: 50 MG WEEKLY SUBCUTNEUS
     Route: 058
     Dates: start: 20250808, end: 20250930

REACTIONS (4)
  - Contusion [None]
  - Pruritus [None]
  - Urticaria [None]
  - Injection related reaction [None]

NARRATIVE: CASE EVENT DATE: 20250808
